FAERS Safety Report 10936149 (Version 2)
Quarter: 2015Q1

REPORT INFORMATION
  Report Type: Report from Study
  Country: US (occurrence: US)
  Receive Date: 20150320
  Receipt Date: 20150325
  Transmission Date: 20150721
  Serious: Yes (Hospitalization)
  Sender: FDA-Public Use
  Company Number: US-009507513-1503USA009396

PATIENT
  Age: 36 Year
  Sex: Male
  Weight: 101.5 kg

DRUGS (6)
  1. VORINOSTAT [Suspect]
     Active Substance: VORINOSTAT
     Dosage: 1500 MG, DOSE DESCRIPTION: 500 MG, 3X/DAY, ON DAYS 1-3  ORAL
     Dates: start: 20140910, end: 20140912
  2. CYTARABINE. [Suspect]
     Active Substance: CYTARABINE
     Dosage: 1500 MG/M2 DAY INFUSION ON DAYS 4-7,
     Route: 042
     Dates: start: 20140913, end: 20140916
  3. IDARUBICIN [Suspect]
     Active Substance: IDARUBICIN
     Indication: ACUTE MYELOID LEUKAEMIA
     Dosage: 8 MG/M2, QD OVER 15 MIN (ON DAYS 4-5)
     Route: 042
     Dates: start: 20150220, end: 20150221
  4. VORINOSTAT [Suspect]
     Active Substance: VORINOSTAT
     Indication: ACUTE MYELOID LEUKAEMIA
     Dosage: 500 MG, 3X/DAY, ON DAYS 1-3
     Route: 048
     Dates: start: 20150217, end: 20150219
  5. IDARUBICIN [Suspect]
     Active Substance: IDARUBICIN
     Dosage: 12 MG/M2, QD OVER 15 MIN (ON DAYS 4-6)
     Route: 042
     Dates: start: 20140913, end: 20140915
  6. CYTARABINE. [Suspect]
     Active Substance: CYTARABINE
     Indication: ACUTE MYELOID LEUKAEMIA
     Dosage: 750 MG/M2, QD (ON DAYS 4-6)
     Route: 042
     Dates: start: 20150220, end: 20150223

REACTIONS (1)
  - Febrile neutropenia [Recovered/Resolved]

NARRATIVE: CASE EVENT DATE: 20150307
